FAERS Safety Report 7651647-0 (Version None)
Quarter: 2011Q3

REPORT INFORMATION
  Report Type: 
  Country: None (occurrence: None)
  Receive Date: 20110802
  Receipt Date: 20110705
  Transmission Date: 20111222
  Serious: Yes (Other)
  Sender: FDA-Public Use
  Company Number: US-BAYER-2011-058368

PATIENT
  Age: 61 Year
  Sex: Female
  Weight: 68 kg

DRUGS (5)
  1. ALEVE (CAPLET) [Suspect]
     Dosage: UNK
     Route: 048
     Dates: start: 20010101
  2. ADVIL LIQUI-GELS [Concomitant]
     Indication: BACK PAIN
     Dosage: 2 DF, ONCE
  3. LISINOPRIL [Concomitant]
  4. ALEVE (CAPLET) [Suspect]
     Indication: BACK PAIN
     Dosage: 2 DF, ONCE
     Route: 048
     Dates: start: 20110627, end: 20110627
  5. PROVENTIL [Concomitant]

REACTIONS (5)
  - RASH GENERALISED [None]
  - CHILLS [None]
  - BURNING SENSATION [None]
  - MALAISE [None]
  - PRURITUS [None]
